FAERS Safety Report 20473585 (Version 1)
Quarter: 2022Q1

REPORT INFORMATION
  Report Type: Spontaneous
  Country: CA (occurrence: US)
  Receive Date: 20220215
  Receipt Date: 20220215
  Transmission Date: 20220423
  Serious: Yes (Other)
  Sender: FDA-Public Use
  Company Number: CA-ALVOGEN-2022-ALVOGEN-118310

PATIENT
  Age: 52 Year
  Sex: Female

DRUGS (4)
  1. SERTRALINE [Suspect]
     Active Substance: SERTRALINE HYDROCHLORIDE
     Indication: Pruritus
  2. OCALIVA [Suspect]
     Active Substance: OBETICHOLIC ACID
     Indication: Primary biliary cholangitis
     Route: 048
     Dates: start: 2020
  3. CHOLESTYRAMINE [Suspect]
     Active Substance: CHOLESTYRAMINE
     Indication: Pruritus
     Route: 065
  4. URSODIOL [Concomitant]
     Active Substance: URSODIOL
     Indication: Product used for unknown indication

REACTIONS (11)
  - COVID-19 [Unknown]
  - Insomnia [Recovered/Resolved]
  - Contusion [Unknown]
  - Paraesthesia [Not Recovered/Not Resolved]
  - Somnolence [Unknown]
  - Trance [Unknown]
  - Paraesthesia oral [Unknown]
  - Fatigue [Not Recovered/Not Resolved]
  - Pruritus [Not Recovered/Not Resolved]
  - Rash [Unknown]
  - Constipation [Unknown]

NARRATIVE: CASE EVENT DATE: 20211201
